FAERS Safety Report 9257770 (Version 1)
Quarter: 2013Q2

REPORT INFORMATION
  Report Type: Spontaneous
  Country: US (occurrence: None)
  Receive Date: 20130424
  Receipt Date: 20130424
  Transmission Date: 20140414
  Serious: Yes (Disabling)
  Sender: FDA-Public Use
  Company Number: None

PATIENT
  Age: 49 Year
  Sex: Female
  Weight: 53.07 kg

DRUGS (1)
  1. FENTANYL TRANSDERMAL PATCH [Suspect]
     Dosage: LAST LESS THAN 4 HOURS, 100 MCG, Q 3 DAYS, TRANSDERMAL
     Route: 062
     Dates: start: 20110422, end: 20130422

REACTIONS (3)
  - Product adhesion issue [None]
  - Analgesic drug level below therapeutic [None]
  - Pain [None]
